FAERS Safety Report 23284564 (Version 1)
Quarter: 2023Q4

REPORT INFORMATION
  Report Type: Spontaneous
  Country: US (occurrence: US)
  Receive Date: 20231211
  Receipt Date: 20231211
  Transmission Date: 20240110
  Serious: Yes (Other)
  Sender: FDA-Public Use
  Company Number: US-PFIZER INC-202300433874

PATIENT
  Age: 65 Year
  Sex: Male

DRUGS (1)
  1. XELJANZ XR [Suspect]
     Active Substance: TOFACITINIB CITRATE
     Indication: Rheumatoid arthritis
     Dosage: 11 MG, 1X/DAY (TAKE 1 TABLET EVERY DAY)
     Route: 048
     Dates: end: 202310

REACTIONS (11)
  - Sjogren^s syndrome [Unknown]
  - Fatigue [Unknown]
  - Abdominal pain [Unknown]
  - Decreased appetite [Unknown]
  - Headache [Unknown]
  - Gait disturbance [Unknown]
  - Paraesthesia [Unknown]
  - Rash [Unknown]
  - Asthenia [Unknown]
  - Weight decreased [Unknown]
  - Eye symptom [Unknown]
